FAERS Safety Report 8178895-8 (Version None)
Quarter: 2012Q1

REPORT INFORMATION
  Report Type: 
  Country: None (occurrence: None)
  Receive Date: 20120302
  Receipt Date: 20120223
  Transmission Date: 20120608
  Serious: Yes (Hospitalization)
  Sender: FDA-Public Use
  Company Number: US-BIOGENIDEC-2012BI005031

PATIENT
  Age: 62 Year
  Sex: Female
  Weight: 90 kg

DRUGS (2)
  1. AVONEX [Suspect]
     Route: 030
     Dates: start: 20100330
  2. AVONEX [Suspect]
     Indication: MULTIPLE SCLEROSIS
     Route: 030
     Dates: start: 20030216, end: 20080702

REACTIONS (4)
  - BLADDER OPERATION [None]
  - ASTHENIA [None]
  - HYSTERECTOMY [None]
  - PAIN [None]
